FAERS Safety Report 11938774 (Version 3)
Quarter: 2017Q1

REPORT INFORMATION
  Report Type: Report from Study
  Country: BR (occurrence: BR)
  Receive Date: 20160122
  Receipt Date: 20170109
  Transmission Date: 20170428
  Serious: Yes (Hospitalization, Other)
  Sender: FDA-Public Use
  Company Number: BR-BAYER-2016-008741

PATIENT
  Sex: Female

DRUGS (3)
  1. XARELTO [Concomitant]
     Active Substance: RIVAROXABAN
     Indication: ANTICOAGULANT THERAPY
     Dosage: 1 DF, QD
     Route: 048
  2. BETAFERON [Suspect]
     Active Substance: INTERFERON BETA-1B
     Indication: PROGRESSIVE MULTIPLE SCLEROSIS
     Dosage: QOD
     Dates: start: 2000
  3. BETAFERON [Suspect]
     Active Substance: INTERFERON BETA-1B
     Indication: PROGRESSIVE MULTIPLE SCLEROSIS
     Dosage: UNK
     Route: 058
     Dates: start: 20040310

REACTIONS (12)
  - Confusional state [None]
  - Varicose vein operation [None]
  - Injection site erythema [Not Recovered/Not Resolved]
  - Pyrexia [Recovered/Resolved]
  - Fibromyalgia [Not Recovered/Not Resolved]
  - Post procedural pulmonary embolism [Not Recovered/Not Resolved]
  - Feeling abnormal [None]
  - Aphasia [None]
  - Malaise [None]
  - Drug administered at inappropriate site [None]
  - Discomfort [None]
  - Fatigue [None]

NARRATIVE: CASE EVENT DATE: 2000
